FAERS Safety Report 9052067 (Version 1)
Quarter: 2013Q1

REPORT INFORMATION
  Report Type: Spontaneous
  Country: AU (occurrence: AU)
  Receive Date: 20130206
  Receipt Date: 20130206
  Transmission Date: 20140127
  Serious: Yes (Other)
  Sender: FDA-Public Use
  Company Number: PHHY2013AU009523

PATIENT
  Sex: Male

DRUGS (1)
  1. DURO K [Suspect]
     Dosage: 2 DF, BID
     Dates: start: 20121224

REACTIONS (1)
  - Blood glucose increased [Unknown]
